FAERS Safety Report 8302011-2 (Version None)
Quarter: 2012Q2

REPORT INFORMATION
  Report Type: 
  Country: None (occurrence: None)
  Receive Date: 20120402
  Receipt Date: 20120321
  Transmission Date: 20120825
  Serious: Yes (Hospitalization)
  Sender: FDA-Public Use
  Company Number: 2011027307

PATIENT
  Sex: Female
  Weight: 113.3993 kg

DRUGS (48)
  1. CYTOTEC [Concomitant]
  2. CRESTOR [Concomitant]
  3. TRUSOPT [Concomitant]
  4. HIZENTRA [Suspect]
  5. PROVENTIL [Concomitant]
  6. MS CONTIN [Concomitant]
  7. ALLEGRA [Concomitant]
  8. FLONASE NASAL SPRAY (FLUTICASONE PROPIONATE) [Concomitant]
  9. CLONIDINE [Concomitant]
  10. ZETIA [Concomitant]
  11. DOMPERIDONE (DOMPERIDONE) [Concomitant]
  12. PERCOCET [Concomitant]
  13. XALATAN [Concomitant]
  14. HUMULIN (INSULIN HUMAN) [Concomitant]
  15. HIZENTRA [Suspect]
     Indication: HYPOGAMMAGLOBULINAEMIA
     Dosage: SEE IMAGE
     Route: 058
     Dates: start: 20110103
  16. HIZENTRA [Suspect]
     Indication: HYPOGAMMAGLOBULINAEMIA
     Dosage: SEE IMAGE
     Route: 058
     Dates: start: 20111214, end: 20111214
  17. HIZENTRA [Suspect]
     Indication: HYPOGAMMAGLOBULINAEMIA
     Dosage: SEE IMAGE
     Route: 058
     Dates: start: 20110103
  18. COREG [Concomitant]
  19. AMBIEN [Concomitant]
  20. ANTVERT (MECLOZINE) [Concomitant]
  21. NORVASC [Concomitant]
  22. LIBRAX [Concomitant]
  23. OXYGEN (OXYGEN) [Concomitant]
  24. TUSSIONEX (TUSSIONEX /00140501/) [Concomitant]
  25. TIROSINT (LEVOTHYROXINE) [Concomitant]
  26. CYMBALTA [Concomitant]
  27. HYDROCHLOROTHIAZIDE [Concomitant]
  28. ZANAFLEX [Concomitant]
  29. TIGAN [Concomitant]
  30. LISINOPRIL [Concomitant]
  31. XYZAL (LEVOCETIRIZINE HYDROCHLORIDE) [Concomitant]
  32. HIZENTRA [Suspect]
  33. NEXIUM [Concomitant]
  34. PHENERGAN [Concomitant]
  35. ACETAMINOPHEN [Concomitant]
  36. SYNTHROID [Concomitant]
  37. LOVENOX [Concomitant]
  38. OXYCODONE HCL [Concomitant]
  39. LASIX [Concomitant]
  40. ENOXAPARIN SODIUM [Concomitant]
  41. MIRAPEX [Concomitant]
  42. CARAFATE [Concomitant]
  43. ATIVAN [Concomitant]
  44. LEVEMIR [Concomitant]
  45. ADVAIR DISKUS 100/50 [Concomitant]
  46. SOMA [Concomitant]
  47. FENOFIBRATE [Concomitant]
  48. ASTEPRO [Concomitant]

REACTIONS (7)
  - INFUSION SITE ERYTHEMA [None]
  - INFUSION SITE EXTRAVASATION [None]
  - INFUSION SITE SWELLING [None]
  - BRONCHITIS [None]
  - INFUSION SITE URTICARIA [None]
  - INFUSION SITE REACTION [None]
  - CELLULITIS [None]
